FAERS Safety Report 13405776 (Version 2)
Quarter: 2017Q2

REPORT INFORMATION
  Report Type: Spontaneous
  Country: US (occurrence: US)
  Receive Date: 20170405
  Receipt Date: 20170516
  Transmission Date: 20170830
  Serious: No
  Sender: FDA-Public Use
  Company Number: US-PFIZER INC-2017146896

PATIENT

DRUGS (1)
  1. ADVIL [Suspect]
     Active Substance: IBUPROFEN
     Dosage: UNK
     Route: 048

REACTIONS (4)
  - Hypoaesthesia oral [Unknown]
  - Product quality issue [Unknown]
  - Paraesthesia oral [Unknown]
  - Poor quality drug administered [Unknown]
